FAERS Safety Report 26117162 (Version 1)
Quarter: 2025Q4

REPORT INFORMATION
  Report Type: Report from Study
  Country: GB (occurrence: GB)
  Receive Date: 20251203
  Receipt Date: 20251203
  Transmission Date: 20260117
  Serious: Yes (Death)
  Sender: ROCHE
  Company Number: GB-ROCHE-10000449832

PATIENT

DRUGS (1)
  1. RITUXIMAB [Suspect]
     Active Substance: RITUXIMAB
     Indication: Glomerulonephritis
     Route: 065

REACTIONS (2)
  - COVID-19 [Fatal]
  - Large intestine perforation [Fatal]
